FAERS Safety Report 18452947 (Version 1)
Quarter: 2020Q4

REPORT INFORMATION
  Report Type: Spontaneous
  Country: JP (occurrence: JP)
  Receive Date: 20201102
  Receipt Date: 20201102
  Transmission Date: 20210114
  Serious: Yes (Death, Other)
  Sender: FDA-Public Use
  Company Number: JP-PFIZER INC-2020422006

PATIENT
  Age: 76 Year
  Sex: Male

DRUGS (4)
  1. CARBOPLATIN. [Suspect]
     Active Substance: CARBOPLATIN
     Dosage: UNK
  2. AVASTIN [Suspect]
     Active Substance: BEVACIZUMAB
     Dosage: UNK
  3. PACLITAXEL HOSPIRA [Suspect]
     Active Substance: PACLITAXEL
     Dosage: 320 MG
  4. TECENTRIQ [Suspect]
     Active Substance: ATEZOLIZUMAB

REACTIONS (3)
  - Multiple organ dysfunction syndrome [Fatal]
  - Neutrophil count decreased [Unknown]
  - Appendicitis perforated [Unknown]
